FAERS Safety Report 9458875 (Version 1)
Quarter: 2013Q3

REPORT INFORMATION
  Report Type: Spontaneous
  Country: NC (occurrence: NC)
  Receive Date: 20130814
  Receipt Date: 20130814
  Transmission Date: 20140515
  Serious: Yes (Other)
  Sender: FDA-Public Use
  Company Number: NC-GLAXOSMITHKLINE-A1037538A

PATIENT
  Sex: Male

DRUGS (1)
  1. LOVAZA [Suspect]
     Indication: PRODUCT USED FOR UNKNOWN INDICATION
     Dosage: 1G UNKNOWN
     Dates: start: 20121221

REACTIONS (3)
  - Diabetes mellitus [Unknown]
  - Laboratory test abnormal [Unknown]
  - Ill-defined disorder [Unknown]
